FAERS Safety Report 6053016-6 (Version None)
Quarter: 2009Q1

REPORT INFORMATION
  Report Type: 
  Country: None (occurrence: None)
  Receive Date: 20090127
  Receipt Date: 20090115
  Transmission Date: 20090719
  Serious: Yes (Death, Disabling)
  Sender: FDA-Public Use
  Company Number: AU-PFIZER INC-2008099540

PATIENT

DRUGS (5)
  1. SUTENT [Suspect]
     Indication: RENAL CANCER
     Dosage: 50 MG, CYCLIC
     Route: 048
     Dates: start: 20080604, end: 20081014
  2. PREDNISOLONE [Concomitant]
     Indication: APPETITE DISORDER
     Dosage: UNK MG,
     Route: 048
     Dates: start: 20080805, end: 20081222
  3. ZOLOFT [Concomitant]
     Indication: DEPRESSION
     Dosage: UNK
     Route: 048
     Dates: start: 20081112, end: 20081222
  4. ADALAT [Concomitant]
     Indication: HYPERTENSION
     Dosage: 20 MG, 1X/DAY
     Route: 048
     Dates: end: 20081222
  5. COVERSYL [Concomitant]
     Indication: HYPERTENSION
     Dosage: 5 MG, 1X/DAY
     Route: 048
     Dates: end: 20081222

REACTIONS (6)
  - APPETITE DISORDER [None]
  - DEPRESSION [None]
  - DIARRHOEA [None]
  - DISEASE PROGRESSION [None]
  - PERFORMANCE STATUS DECREASED [None]
  - RENAL CELL CARCINOMA [None]
